FAERS Safety Report 18285201 (Version 1)
Quarter: 2020Q3

REPORT INFORMATION
  Report Type: Spontaneous
  Country: US (occurrence: US)
  Receive Date: 20200918
  Receipt Date: 20200918
  Transmission Date: 20201103
  Serious: No
  Sender: FDA-Public Use
  Company Number: US-PFIZER INC-2020360252

PATIENT
  Age: 58 Year
  Sex: Male
  Weight: 88.44 kg

DRUGS (1)
  1. INLYTA [Suspect]
     Active Substance: AXITINIB
     Indication: RENAL CELL CARCINOMA
     Dosage: 5 MG, 2X/DAY (EVERY 12 HOURS)
     Route: 048
     Dates: start: 20200130

REACTIONS (4)
  - Decreased appetite [Recovering/Resolving]
  - Dysphonia [Unknown]
  - Fatigue [Recovering/Resolving]
  - Rash [Recovered/Resolved]
